FAERS Safety Report 9306425 (Version 1)
Quarter: 2013Q1

REPORT INFORMATION
  Report Type: Spontaneous
  Country: SE (occurrence: None)
  Receive Date: 20121203
  Receipt Date: 20121203
  Transmission Date: 20140127
  Serious: Yes (Life-Threatening, Hospitalization)
  Sender: FDA-Public Use
  Company Number: SE-MACLEODS PHARMA-000040

PATIENT
  Age: 55 Year
  Sex: Female

DRUGS (3)
  1. LOSARTAN [Suspect]
     Indication: HYPERTENSION
  2. PREDNISOLONE (PREDNISOLONE) [Concomitant]
  3. TAVEGYL (TAVEGYL) [Concomitant]

REACTIONS (2)
  - Arteriospasm coronary [None]
  - Myocardial infarction [None]
